FAERS Safety Report 15871026 (Version 1)
Quarter: 2019Q1

REPORT INFORMATION
  Report Type: Other
  Country: US (occurrence: US)
  Receive Date: 20190126
  Receipt Date: 20190126
  Transmission Date: 20190417
  Serious: Yes (Hospitalization, Disabling)
  Sender: FDA-Public Use
  Company Number: US-ACORDA-ACO_155215_2018

PATIENT
  Age: 76 Year
  Sex: Female

DRUGS (8)
  1. BACLOFEN. [Concomitant]
     Active Substance: BACLOFEN
     Indication: PRODUCT USED FOR UNKNOWN INDICATION
     Dosage: UNK
     Route: 065
  2. ARICEPT [Concomitant]
     Active Substance: DONEPEZIL HYDROCHLORIDE
     Indication: PRODUCT USED FOR UNKNOWN INDICATION
     Dosage: UNK
     Route: 065
  3. NAMZARIC [Concomitant]
     Active Substance: DONEPEZIL HYDROCHLORIDE\MEMANTINE HYDROCHLORIDE
     Indication: PRODUCT USED FOR UNKNOWN INDICATION
     Dosage: UNK
     Route: 065
  4. NAMENDA [Concomitant]
     Active Substance: MEMANTINE HYDROCHLORIDE
     Indication: PRODUCT USED FOR UNKNOWN INDICATION
     Dosage: UNK
     Route: 065
  5. AVONEX [Suspect]
     Active Substance: INTERFERON BETA-1A
     Indication: MULTIPLE SCLEROSIS
     Dosage: 30 MICROGRAM, 1 IN 1 WEEK
     Route: 030
     Dates: start: 20180202
  6. COPAXONE [Suspect]
     Active Substance: GLATIRAMER ACETATE
     Indication: PRODUCT USED FOR UNKNOWN INDICATION
     Dosage: UNK
     Route: 065
  7. AMPYRA [Suspect]
     Active Substance: DALFAMPRIDINE
     Indication: GAIT DISTURBANCE
     Dosage: UNK
     Route: 065
  8. AMPYRA [Suspect]
     Active Substance: DALFAMPRIDINE
     Indication: MULTIPLE SCLEROSIS

REACTIONS (20)
  - Influenza [Unknown]
  - Gait inability [Unknown]
  - Tremor [Unknown]
  - Hypoaesthesia [Unknown]
  - Therapy cessation [Unknown]
  - Fatigue [Unknown]
  - Amnestic disorder [Unknown]
  - Muscle spasticity [Unknown]
  - Asthenia [Unknown]
  - Reduced facial expression [Unknown]
  - Dysuria [Unknown]
  - Loss of personal independence in daily activities [Unknown]
  - Pollakiuria [Unknown]
  - Ataxia [Unknown]
  - Paraesthesia [Unknown]
  - Infrequent bowel movements [Unknown]
  - Multiple sclerosis [Unknown]
  - Visual impairment [Unknown]
  - Hypokinesia [Unknown]
  - Bradykinesia [Unknown]

NARRATIVE: CASE EVENT DATE: 201807
